FAERS Safety Report 13258491 (Version 1)
Quarter: 2017Q1

REPORT INFORMATION
  Report Type: Spontaneous
  Country: CA (occurrence: CA)
  Receive Date: 20170222
  Receipt Date: 20170222
  Transmission Date: 20170428
  Serious: Yes (Other)
  Sender: FDA-Public Use
  Company Number: CA-TEVA-741391ACC

PATIENT
  Age: 32 Year
  Sex: Female

DRUGS (12)
  1. PANTOPRAZOLE [Suspect]
     Active Substance: PANTOPRAZOLE SODIUM
     Indication: GASTROOESOPHAGEAL REFLUX DISEASE
  2. CYMBALTA [Concomitant]
     Active Substance: DULOXETINE HYDROCHLORIDE
  3. PERCOCET [Concomitant]
     Active Substance: ACETAMINOPHEN\OXYCODONE HYDROCHLORIDE
  4. TECTA [Concomitant]
     Active Substance: PANTOPRAZOLE MAGNESIUM
  5. ZYBAN [Concomitant]
     Active Substance: BUPROPION HYDROCHLORIDE
  6. OMNARIS [Concomitant]
     Active Substance: CICLESONIDE
  7. TOPAMAX [Concomitant]
     Active Substance: TOPIRAMATE
  8. NIX CREME RINSE [Concomitant]
  9. PANTOPRAZOLE [Suspect]
     Active Substance: PANTOPRAZOLE SODIUM
     Indication: PEPTIC ULCER
     Dosage: 80 MILLIGRAM DAILY;
     Route: 048
  10. BETNOVATE [Concomitant]
     Active Substance: BETAMETHASONE
  11. VENTOLIN [Concomitant]
     Active Substance: ALBUTEROL SULFATE
  12. VALISONE [Concomitant]
     Active Substance: BETAMETHASONE VALERATE

REACTIONS (5)
  - Condition aggravated [Recovered/Resolved]
  - Product substitution issue [Recovered/Resolved]
  - Eructation [Recovered/Resolved]
  - Oedema peripheral [Recovered/Resolved]
  - Gastrooesophageal reflux disease [Recovered/Resolved]
